FAERS Safety Report 9494292 (Version 1)
Quarter: 2013Q3

REPORT INFORMATION
  Report Type: Spontaneous
  Country: US (occurrence: None)
  Receive Date: 20130828
  Receipt Date: 20130828
  Transmission Date: 20140515
  Serious: Yes (Other)
  Sender: FDA-Public Use
  Company Number: TPA2013A07822

PATIENT
  Age: 52 Year
  Sex: Male

DRUGS (10)
  1. ULORIC (FEBUXOSTAT) [Suspect]
     Indication: GOUT
     Dosage: 80 MG, 1 IN 1 D, PO
     Route: 048
     Dates: start: 2010, end: 201302
  2. ULORIC (FEBUXOSTAT) [Suspect]
     Indication: SYNOVIAL FLUID CRYSTAL
     Dosage: 80 MG, 1 IN 1 D, PO
     Route: 048
     Dates: start: 2010, end: 201302
  3. OMEPRAZOLE (OMEPRAZOLE) [Concomitant]
  4. PLAVIX (CLOPIDOGREL BISULFATE) [Concomitant]
  5. VERAPAMIL (VERAPAMIL) [Concomitant]
  6. CRESTOR (ROSUVASTATIN CALCIUM) [Concomitant]
  7. ISOSORBIDE (ISOSORBIDE) [Concomitant]
  8. TOPAMAX (TOPIRAMATE) [Concomitant]
  9. HYDROCODONE AND ACETAMINOPHEN (PARACETAMOL, HYDROCODONE BITARTRATE) (TABLETS) [Concomitant]
  10. AMBIEN (ZOLPIDEM TARTRATE) [Concomitant]

REACTIONS (2)
  - Blood uric acid decreased [None]
  - Coronary artery occlusion [None]
